FAERS Safety Report 21048156 (Version 1)
Quarter: 2022Q3

REPORT INFORMATION
  Report Type: Spontaneous
  Country: US (occurrence: US)
  Receive Date: 20220706
  Receipt Date: 20220706
  Transmission Date: 20221026
  Serious: No
  Sender: FDA-Public Use
  Company Number: US-PFIZER INC-202200916114

PATIENT
  Age: 52 Year
  Sex: Female

DRUGS (5)
  1. PAXLOVID [Suspect]
     Active Substance: NIRMATRELVIR\RITONAVIR
     Indication: COVID-19 treatment
     Dosage: UNK
     Dates: start: 20220510, end: 20220514
  2. ZYRTEC [Concomitant]
     Active Substance: CETIRIZINE HYDROCHLORIDE
     Dosage: UNK
     Dates: start: 20211231
  3. MUCINEX DM [Concomitant]
     Active Substance: DEXTROMETHORPHAN HYDROBROMIDE\GUAIFENESIN
     Dosage: UNK
     Dates: start: 20220508, end: 20220609
  4. VITAMIN C [Concomitant]
     Active Substance: ASCORBIC ACID
     Dosage: UNK
     Dates: start: 20211231
  5. ZINC [Concomitant]
     Active Substance: ZINC
     Dosage: UNK
     Dates: start: 20211231

REACTIONS (6)
  - COVID-19 [Recovered/Resolved with Sequelae]
  - Disease recurrence [Recovered/Resolved with Sequelae]
  - Sinus headache [Recovered/Resolved with Sequelae]
  - Nasal congestion [Recovered/Resolved with Sequelae]
  - Lymphadenopathy [Recovered/Resolved with Sequelae]
  - Ear pain [Recovered/Resolved with Sequelae]

NARRATIVE: CASE EVENT DATE: 20220521
